FAERS Safety Report 13877466 (Version 8)
Quarter: 2017Q4

REPORT INFORMATION
  Report Type: Report from Study
  Country: BE (occurrence: BE)
  Receive Date: 20170817
  Receipt Date: 20171016
  Transmission Date: 20180320
  Serious: Yes (Hospitalization)
  Sender: FDA-Public Use
  Company Number: BE-ROCHE-1977732

PATIENT
  Age: 54 Year
  Sex: Male
  Weight: 87 kg

DRUGS (12)
  1. VEMURAFENIB. [Suspect]
     Active Substance: VEMURAFENIB
     Dosage: WITH UNSPECIFIED REDUCE DOSE
     Route: 048
     Dates: start: 20170906
  2. CETIRIZINE [Concomitant]
     Active Substance: CETIRIZINE HYDROCHLORIDE
     Indication: RASH
     Route: 065
     Dates: start: 20170629, end: 20170720
  3. DAFALGAN [Concomitant]
     Active Substance: ACETAMINOPHEN
     Indication: PAIN
     Route: 065
     Dates: start: 20170811
  4. VEMURAFENIB. [Suspect]
     Active Substance: VEMURAFENIB
     Indication: MALIGNANT MELANOMA
     Dosage: DATE OF MOST RECENT DOSE OF VEMURAFENIB (4 DF) PRIOR TO HOSPITALISATION FOR PERICARDITIS: 09/AUG/201
     Route: 048
     Dates: start: 20170615
  5. COBIMETINIB. [Suspect]
     Active Substance: COBIMETINIB
     Indication: MALIGNANT MELANOMA
     Dosage: 3X 20MG TABLET?DATE OF MOST RECENT DOSE (60) PRIOR TO PERICARDITIS ON 19/JUL/2017
     Route: 048
     Dates: start: 20170615
  6. PANTOMED (PANTOPRAZOLE SODIUM) [Concomitant]
     Active Substance: PANTOPRAZOLE SODIUM
     Route: 065
     Dates: start: 20170811, end: 20170821
  7. COBIMETINIB. [Suspect]
     Active Substance: COBIMETINIB
     Dosage: DATE OF MOST RECENT DOSE 40 MG PRIOR TO PLEURAL EFFUSION ON 28/AUG/2017
     Route: 048
     Dates: start: 20170817, end: 20170828
  8. VEMURAFENIB. [Suspect]
     Active Substance: VEMURAFENIB
     Dosage: DATE OF MOST RECENT DOSE OF VEMURAFENIB (4 DF) PRIOR TO PLEURAL EFFUSION : 01/SEP/2017
     Route: 048
     Dates: start: 20170817, end: 20170901
  9. COBIMETINIB. [Suspect]
     Active Substance: COBIMETINIB
     Dosage: UNSPECIFIED DOSE
     Route: 048
     Dates: start: 20170906
  10. MOTILIUM [Concomitant]
     Active Substance: DOMPERIDONE
     Indication: NAUSEA
     Route: 065
     Dates: start: 20170629
  11. IMODIUM [Concomitant]
     Active Substance: LOPERAMIDE HYDROCHLORIDE
     Indication: DIARRHOEA
     Route: 065
     Dates: start: 20170901
  12. PLACEBO [Suspect]
     Active Substance: UNSPECIFIED INGREDIENT
     Indication: MALIGNANT MELANOMA
     Dosage: DATE OF MOST RECENT DOSE OF PLACEBO PRIOR TO EVENT ONSET WAS 27/JUL/2017
     Route: 042
     Dates: start: 20170713

REACTIONS (2)
  - Pericarditis [Recovered/Resolved]
  - Pleural effusion [Recovered/Resolved]

NARRATIVE: CASE EVENT DATE: 20170808
